FAERS Safety Report 6425688-5 (Version None)
Quarter: 2009Q4

REPORT INFORMATION
  Report Type: 
  Country: None (occurrence: None)
  Receive Date: 20091103
  Receipt Date: 20091021
  Transmission Date: 20100525
  Serious: Yes (Other)
  Sender: FDA-Public Use
  Company Number: PHHY2009BR46535

PATIENT
  Age: 72 Year
  Sex: Female

DRUGS (2)
  1. EXFORGE [Suspect]
     Indication: HYPERTENSION
     Dosage: 160/5 MG, DAILY
     Route: 048
  2. DIOVAN [Suspect]
     Dosage: 80 MG, UNK

REACTIONS (8)
  - BLOOD PRESSURE INADEQUATELY CONTROLLED [None]
  - DYSPNOEA [None]
  - ERYSIPELAS [None]
  - FEELING ABNORMAL [None]
  - FUNGAL INFECTION [None]
  - HYPERTENSION [None]
  - MALAISE [None]
  - TREATMENT NONCOMPLIANCE [None]
